FAERS Safety Report 23135600 (Version 2)
Quarter: 2023Q4

REPORT INFORMATION
  Report Type: Spontaneous
  Country: BE (occurrence: BE)
  Receive Date: 20231101
  Receipt Date: 20231110
  Transmission Date: 20240109
  Serious: Yes (Disabling, Other)
  Sender: FDA-Public Use
  Company Number: None

PATIENT
  Age: 53 Year
  Sex: Female

DRUGS (3)
  1. MEDROL [Suspect]
     Active Substance: METHYLPREDNISOLONE
     Indication: Pneumonia viral
     Dosage: 1 CO FOR 5 DAYS, THEN 1/2 FOR 5 DAYS AND THEN 1/4 FOR 3 DAYS
     Dates: start: 20190305
  2. AVELOX [Suspect]
     Active Substance: MOXIFLOXACIN HYDROCHLORIDE
     Indication: Pneumonia viral
     Dosage: 5 DF
     Dates: start: 20190305
  3. AIMOVIG [Concomitant]
     Active Substance: ERENUMAB-AOOE
     Dosage: UNK
     Dates: start: 2020

REACTIONS (6)
  - Iris atrophy [Unknown]
  - Iris hypopigmentation [Unknown]
  - Arthralgia [Unknown]
  - Tendon pain [Unknown]
  - Muscle rupture [Unknown]
  - Off label use [Unknown]

NARRATIVE: CASE EVENT DATE: 20190320
